FAERS Safety Report 7227820-2 (Version None)
Quarter: 2011Q1

REPORT INFORMATION
  Report Type: 
  Country: None (occurrence: None)
  Receive Date: 20110114
  Receipt Date: 20110112
  Transmission Date: 20110831
  Serious: Yes (Other)
  Sender: FDA-Public Use
  Company Number: AZ-PFIZER INC-2011008398

PATIENT
  Age: 22 Year
  Sex: Female
  Weight: 55 kg

DRUGS (3)
  1. CYCLADOL [Concomitant]
  2. HALOPERIDOL [Concomitant]
  3. ZELDOX [Suspect]
     Indication: SCHIZOPHRENIA
     Dosage: 60 MG, 1X/DAY
     Route: 048
     Dates: start: 20110110, end: 20110110

REACTIONS (2)
  - HYPERSENSITIVITY [None]
  - FEAR [None]
